FAERS Safety Report 19755528 (Version 1)
Quarter: 2021Q3

REPORT INFORMATION
  Report Type: Spontaneous
  Country: US (occurrence: US)
  Receive Date: 20210827
  Receipt Date: 20210827
  Transmission Date: 20211014
  Serious: Yes (Death, Disabling)
  Sender: FDA-Public Use
  Company Number: US-ASTRAZENECA-2021A693741

PATIENT
  Age: 75 Year
  Sex: Female
  Weight: 60.8 kg

DRUGS (1)
  1. OLAPARIB. [Suspect]
     Active Substance: OLAPARIB
     Indication: OVARIAN CANCER
     Route: 048
     Dates: start: 20210806, end: 20210821

REACTIONS (1)
  - Amnesia [Fatal]

NARRATIVE: CASE EVENT DATE: 20210818
